FAERS Safety Report 9167772 (Version 1)
Quarter: 2013Q1

REPORT INFORMATION
  Report Type: Spontaneous
  Country: US (occurrence: US)
  Receive Date: 20130318
  Receipt Date: 20130318
  Transmission Date: 20140127
  Serious: No
  Sender: FDA-Public Use
  Company Number: US-PFIZER INC-2013088784

PATIENT
  Age: 42 Year
  Sex: Female
  Weight: 63.49 kg

DRUGS (2)
  1. CHANTIX [Suspect]
     Indication: SMOKING CESSATION THERAPY
     Dosage: 0.5 MG (SPLITTING 1MG TABLET INTO HALF), DAILY
     Route: 048
     Dates: start: 201303
  2. PROPRANOLOL [Concomitant]
     Indication: HYPERTENSION
     Dosage: UNK

REACTIONS (4)
  - Drug intolerance [Not Recovered/Not Resolved]
  - Hot flush [Not Recovered/Not Resolved]
  - Feeling jittery [Not Recovered/Not Resolved]
  - Hypoaesthesia [Not Recovered/Not Resolved]
